FAERS Safety Report 5322770-0 (Version None)
Quarter: 2007Q1

REPORT INFORMATION
  Report Type: 
  Country: None (occurrence: None)
  Receive Date: 20070223
  Receipt Date: 20070111
  Transmission Date: 20070707
  Serious: Yes (Hospitalization)
  Sender: FDA-Public Use
  Company Number: 07P-163-0355792-00

PATIENT
  Age: 67 Year
  Sex: Male
  Weight: 109 kg

DRUGS (5)
  1. TRICOR [Suspect]
     Indication: BLOOD TRIGLYCERIDES INCREASED
     Dosage: 145 MG, 1 IN 1 D, PER ORAL
     Route: 048
     Dates: start: 20060715, end: 20061217
  2. CLOPIDOGREL BISULFATE [Concomitant]
  3. AMLODIPINE BESYLATE [Concomitant]
  4. ATORVASTATIN CALCIUM [Concomitant]
  5. TRAZODONE HCL [Concomitant]

REACTIONS (1)
  - CHOLELITHIASIS [None]
